FAERS Safety Report 12702779 (Version 1)
Quarter: 2016Q3

REPORT INFORMATION
  Report Type: Spontaneous
  Country: ZA (occurrence: ZA)
  Receive Date: 20160831
  Receipt Date: 20160831
  Transmission Date: 20161109
  Serious: Yes (Death, Hospitalization)
  Sender: FDA-Public Use
  Company Number: ZA-NORTHSTAR HEALTHCARE HOLDINGS-ZA-2016NSR001840

PATIENT
  Age: 22 Month
  Sex: Male

DRUGS (1)
  1. PROPRANOLOL HYDROCHLORIDE. [Suspect]
     Active Substance: PROPRANOLOL HYDROCHLORIDE
     Indication: HYPERMETABOLISM
     Dosage: 4 MG/KG, QD

REACTIONS (7)
  - Intestinal obstruction [Unknown]
  - Intestinal ischaemia [Fatal]
  - Pneumonia klebsiella [Unknown]
  - Circulatory collapse [Unknown]
  - Escherichia sepsis [Unknown]
  - Pneumatosis [Unknown]
  - Vasoconstriction [Unknown]
